FAERS Safety Report 7301482-8 (Version None)
Quarter: 2011Q1

REPORT INFORMATION
  Report Type: 
  Country: None (occurrence: None)
  Receive Date: 20110218
  Receipt Date: 20100318
  Transmission Date: 20110831
  Serious: No
  Sender: FDA-Public Use
  Company Number: US-BRISTOL-MYERS SQUIBB COMPANY-15026164

PATIENT
  Sex: Male

DRUGS (1)
  1. KENALOG-10 [Suspect]

REACTIONS (1)
  - INJECTION SITE ATROPHY [None]
